FAERS Safety Report 7619338-X (Version None)
Quarter: 2011Q3

REPORT INFORMATION
  Report Type: 
  Country: None (occurrence: None)
  Receive Date: 20110719
  Receipt Date: 20110707
  Transmission Date: 20111222
  Serious: Yes (Other)
  Sender: FDA-Public Use
  Company Number: US-BRISTOL-MYERS SQUIBB COMPANY-15878671

PATIENT
  Age: 29 Year
  Sex: Female

DRUGS (3)
  1. PROZAC [Concomitant]
  2. ATIVAN [Concomitant]
  3. ABILIFY [Suspect]
     Indication: DEPRESSION
     Dosage: ABILIFY 10 MG ONCE DAILY FOR 1ST 2 MONTHS, ALSO 3 WEEKS.LOT#:OF59689A.EXP DATE-MAY12.
     Dates: start: 20110101

REACTIONS (3)
  - PAIN [None]
  - DRUG INEFFECTIVE [None]
  - DRUG DEPENDENCE [None]
